FAERS Safety Report 14036070 (Version 1)
Quarter: 2017Q4

REPORT INFORMATION
  Report Type: Spontaneous
  Country: US (occurrence: US)
  Receive Date: 20171003
  Receipt Date: 20171003
  Transmission Date: 20180321
  Serious: No
  Sender: FDA-Public Use
  Company Number: US-ROCHE-1962148

PATIENT
  Age: 61 Year
  Sex: Female
  Weight: 59.02 kg

DRUGS (1)
  1. OCREVUS [Suspect]
     Active Substance: OCRELIZUMAB
     Indication: PROGRESSIVE MULTIPLE SCLEROSIS
     Dosage: DAY 1 DAY 15 AND THEN EVERY 6 MONTHS ;ONGOING: YES
     Route: 042
     Dates: start: 20170605

REACTIONS (8)
  - Nausea [Not Recovered/Not Resolved]
  - Ill-defined disorder [Recovered/Resolved]
  - Alopecia [Not Recovered/Not Resolved]
  - Dizziness [Not Recovered/Not Resolved]
  - Speech disorder [Recovered/Resolved]
  - Dark circles under eyes [Not Recovered/Not Resolved]
  - Slow speech [Recovered/Resolved]
  - Fatigue [Recovered/Resolved]

NARRATIVE: CASE EVENT DATE: 20170624
